FAERS Safety Report 19309100 (Version 1)
Quarter: 2021Q2

REPORT INFORMATION
  Report Type: Report from Study
  Country: US (occurrence: US)
  Receive Date: 20210525
  Receipt Date: 20210525
  Transmission Date: 20210717
  Serious: No
  Sender: FDA-Public Use
  Company Number: US-SUNOVION-2021SUN001932

PATIENT
  Age: 73 Year
  Sex: Female

DRUGS (1)
  1. KYNMOBI [Suspect]
     Active Substance: APOMORPHINE HYDROCHLORIDE
     Indication: PARKINSON^S DISEASE
     Dosage: 10 MG
     Route: 060
     Dates: start: 20210519

REACTIONS (7)
  - Miosis [Unknown]
  - Eye movement disorder [Unknown]
  - Dizziness [Unknown]
  - Parkinsonian gait [Unknown]
  - Vomiting [Recovering/Resolving]
  - Nausea [Recovering/Resolving]
  - Blood pressure decreased [Unknown]

NARRATIVE: CASE EVENT DATE: 20210519
